FAERS Safety Report 5711167-7 (Version None)
Quarter: 2008Q2

REPORT INFORMATION
  Report Type: 
  Country: None (occurrence: None)
  Receive Date: 20080418
  Receipt Date: 20080407
  Transmission Date: 20081010
  Serious: Yes (Hospitalization, Other)
  Sender: FDA-Public Use
  Company Number: L08-USA-01368-01

PATIENT
  Age: 80 Year
  Sex: Male

DRUGS (5)
  1. THEOPHYLLINE [Suspect]
     Dosage: 200 MG TID
  2. DYAZIDE [Concomitant]
  3. AZATHIOPRINE [Concomitant]
  4. MECLIZINE [Concomitant]
  5. ALBUTEROL [Concomitant]

REACTIONS (36)
  - ABDOMINAL DISTENSION [None]
  - ABDOMINAL PAIN UPPER [None]
  - ATRIAL TACHYCARDIA [None]
  - BLOOD BICARBONATE DECREASED [None]
  - BLOOD GLUCOSE INCREASED [None]
  - BLOOD LACTIC ACID INCREASED [None]
  - BLOOD UREA INCREASED [None]
  - BREATH SOUNDS ABNORMAL [None]
  - CONFUSIONAL STATE [None]
  - CREPITATIONS [None]
  - DELIRIUM [None]
  - DIABETIC KETOACIDOSIS [None]
  - DISORIENTATION [None]
  - DRUG TOXICITY [None]
  - DYSPNOEA [None]
  - FALL [None]
  - FEMORAL NECK FRACTURE [None]
  - HIP FRACTURE [None]
  - HYPOKALAEMIA [None]
  - ILEUS [None]
  - INFECTION [None]
  - KETOACIDOSIS [None]
  - KETONURIA [None]
  - LACTIC ACIDOSIS [None]
  - METABOLIC ACIDOSIS [None]
  - METABOLIC DISORDER [None]
  - MUCOUS MEMBRANE DISORDER [None]
  - NEUTROPHIL COUNT INCREASED [None]
  - PCO2 DECREASED [None]
  - PNEUMONIA [None]
  - PO2 DECREASED [None]
  - RESPIRATORY ALKALOSIS [None]
  - SKIN TURGOR DECREASED [None]
  - STARVATION [None]
  - TACHYCARDIA [None]
  - WHITE BLOOD CELL COUNT INCREASED [None]
